FAERS Safety Report 8396388-X (Version None)
Quarter: 2012Q2

REPORT INFORMATION
  Report Type: 
  Country: None (occurrence: None)
  Receive Date: 20120530
  Receipt Date: 20120522
  Transmission Date: 20120825
  Serious: Yes (Other)
  Sender: FDA-Public Use
  Company Number: US-MERCK-1111USA02473

PATIENT
  Age: 82 Year
  Sex: Female
  Weight: 70 kg

DRUGS (3)
  1. FOSAMAX [Suspect]
     Indication: OSTEOPENIA
     Route: 048
     Dates: start: 20050606, end: 20090101
  2. FOSAMAX [Suspect]
     Indication: BONE DENSITY DECREASED
     Route: 048
     Dates: start: 20050606, end: 20090101
  3. CLONIDINE [Concomitant]
     Indication: HYPERTENSION
     Route: 065

REACTIONS (28)
  - BASAL CELL CARCINOMA [None]
  - CONSTIPATION [None]
  - HYPOKALAEMIA [None]
  - INCONTINENCE [None]
  - DENTAL CARIES [None]
  - TONGUE DISORDER [None]
  - OSTEOARTHRITIS [None]
  - DIVERTICULUM OESOPHAGEAL [None]
  - DYSPNOEA EXERTIONAL [None]
  - GASTROOESOPHAGEAL REFLUX DISEASE [None]
  - TOOTH LOSS [None]
  - ACTINIC KERATOSIS [None]
  - EMPHYSEMA [None]
  - NECK MASS [None]
  - PAROTITIS [None]
  - OTITIS EXTERNA [None]
  - COLON CANCER [None]
  - HYPERCALCAEMIA [None]
  - DYSPHAGIA [None]
  - FALL [None]
  - HYPERKERATOSIS [None]
  - URINARY INCONTINENCE [None]
  - TEMPOROMANDIBULAR JOINT SYNDROME [None]
  - DIVERTICULUM [None]
  - GAIT DISTURBANCE [None]
  - HYPOXIA [None]
  - MENTAL STATUS CHANGES [None]
  - PSORIASIS [None]
